FAERS Safety Report 8345376-8 (Version None)
Quarter: 2012Q2

REPORT INFORMATION
  Report Type: 
  Country: None (occurrence: None)
  Receive Date: 20120504
  Receipt Date: 20120426
  Transmission Date: 20120825
  Serious: Yes (Hospitalization)
  Sender: FDA-Public Use
  Company Number: DSA_48922_2012

PATIENT
  Sex: Female

DRUGS (18)
  1. PREMARIN [Concomitant]
  2. COLACE [Concomitant]
  3. KLONOPIN [Concomitant]
  4. OXYCONTIN [Concomitant]
  5. XENAZINE [Suspect]
     Indication: DYSKINESIA
     Dosage: (25 MG BID ORAL)
     Route: 048
     Dates: start: 20110401
  6. XENAZINE [Suspect]
     Indication: TARDIVE DYSKINESIA
     Dosage: (25 MG BID ORAL)
     Route: 048
     Dates: start: 20110401
  7. XENAZINE [Suspect]
     Indication: TORTICOLLIS
     Dosage: (25 MG BID ORAL)
     Route: 048
     Dates: start: 20110401
  8. NORVASC [Concomitant]
  9. ZESTRIL [Concomitant]
  10. PRILOSEC [Concomitant]
  11. REMERON [Concomitant]
  12. BOTOX [Suspect]
     Indication: MOVEMENT DISORDER
     Dosage: (65 UNITS FREQUENCY UNKNOWN), (80 UNITS, FREQUENCY UNKNOWN)
     Dates: start: 20111001
  13. DILANTIN [Concomitant]
  14. KEPPRA [Concomitant]
  15. TRAZODONE HCL [Concomitant]
  16. MS CONTIN [Suspect]
     Indication: PAIN
     Dosage: (DF), (DF)
  17. IRON SUPPLEMENT WITH VIT C + HERBS [Concomitant]
  18. COGENTIN [Concomitant]

REACTIONS (7)
  - FALL [None]
  - DYSPHAGIA [None]
  - COGNITIVE DISORDER [None]
  - CRYING [None]
  - HEAD INJURY [None]
  - BLOOD PRESSURE DECREASED [None]
  - SYNCOPE [None]
